FAERS Safety Report 6371397-0 (Version None)
Quarter: 2009Q3

REPORT INFORMATION
  Report Type: 
  Country: None (occurrence: None)
  Receive Date: 20090923
  Receipt Date: 20080827
  Transmission Date: 20100115
  Serious: Yes (Hospitalization)
  Sender: FDA-Public Use
  Company Number: US-ASTRAZENECA-2007UW09109

PATIENT
  Age: 28 Year
  Sex: Male
  Weight: 108.9 kg

DRUGS (3)
  1. SEROQUEL [Suspect]
     Indication: SCHIZOPHRENIA
     Route: 048
     Dates: end: 20060101
  2. RISPERDAL [Concomitant]
  3. ZYPREXA [Concomitant]

REACTIONS (2)
  - BACK INJURY [None]
  - TYPE 2 DIABETES MELLITUS [None]
